FAERS Safety Report 9739489 (Version 2)
Quarter: 2013Q4

REPORT INFORMATION
  Report Type: Spontaneous
  Country: JP (occurrence: JP)
  Receive Date: 20131209
  Receipt Date: 20131223
  Transmission Date: 20140711
  Serious: Yes (Death)
  Sender: FDA-Public Use
  Company Number: JP-SA-2013SA124377

PATIENT
  Age: 75 Year
  Sex: Male
  Weight: 56.3 kg

DRUGS (6)
  1. TAXOTERE [Suspect]
     Indication: PROSTATE CANCER
     Route: 042
     Dates: start: 20130910, end: 20130910
  2. TAXOTERE [Suspect]
     Indication: PROSTATE CANCER
     Route: 042
     Dates: start: 20131022, end: 20131022
  3. TAXOTERE [Suspect]
     Indication: PROSTATE CANCER
     Route: 042
     Dates: start: 20131001, end: 20131001
  4. DECADRON [Concomitant]
     Indication: PROSTATE CANCER
     Route: 048
     Dates: start: 20130909, end: 20131111
  5. GASTER [Concomitant]
     Indication: PROPHYLAXIS
     Route: 048
     Dates: start: 20130909, end: 20131111
  6. DEGARELIX ACETATE [Concomitant]
     Dates: start: 20121221, end: 201310

REACTIONS (3)
  - Interstitial lung disease [Fatal]
  - Tachypnoea [Fatal]
  - Tachycardia [Fatal]
